FAERS Safety Report 4507437-0 (Version None)
Quarter: 2004Q4

REPORT INFORMATION
  Report Type: 
  Country: None (occurrence: None)
  Receive Date: 20041118
  Receipt Date: 20041110
  Transmission Date: 20050328
  Serious: Yes (Disabling, Other)
  Sender: FDA-Public Use
  Company Number: HQWYE244728JUL03

PATIENT
  Age: 52 Year
  Sex: Female

DRUGS (1)
  1. PREMPRO [Suspect]
     Dosage: ORAL/PRIOR TO JULY 18, 2001 AND FOR SOMETIME AFTER
     Route: 048

REACTIONS (3)
  - BREAST CANCER METASTATIC [None]
  - BREAST CANCER STAGE II [None]
  - LYMPHADENOPATHY [None]
